FAERS Safety Report 9263144 (Version 1)
Quarter: 2013Q2

REPORT INFORMATION
  Report Type: Spontaneous
  Country: US (occurrence: US)
  Receive Date: 20130430
  Receipt Date: 20130430
  Transmission Date: 20140414
  Serious: No
  Sender: FDA-Public Use
  Company Number: US-009507513-1304USA007705

PATIENT
  Sex: Female
  Weight: 68.48 kg

DRUGS (1)
  1. NEXPLANON [Suspect]
     Indication: CONTRACEPTION
     Dosage: 1 DF, UNK
     Dates: start: 20130129

REACTIONS (8)
  - Insomnia [Unknown]
  - Nausea [Unknown]
  - Device difficult to use [Unknown]
  - Vomiting [Unknown]
  - Device dislocation [Unknown]
  - Abdominal pain upper [Not Recovered/Not Resolved]
  - Breast pain [Not Recovered/Not Resolved]
  - Fatigue [Unknown]
